FAERS Safety Report 10081170 (Version 2)
Quarter: 2014Q2

REPORT INFORMATION
  Report Type: Spontaneous
  Country: GB (occurrence: GB)
  Receive Date: 20140416
  Receipt Date: 20140502
  Transmission Date: 20141212
  Serious: Yes (Death)
  Sender: FDA-Public Use
  Company Number: PHFR2014GB002851

PATIENT
  Sex: Male

DRUGS (2)
  1. CLOZARIL [Suspect]
     Dosage: UNK
     Route: 048
     Dates: start: 20120912
  2. LITHIUM [Suspect]
     Dosage: UNK

REACTIONS (3)
  - Coma [Fatal]
  - Encephalopathy [Fatal]
  - Hepatic function abnormal [Fatal]
